FAERS Safety Report 8790894 (Version 3)
Quarter: 2012Q4

REPORT INFORMATION
  Report Type: Spontaneous
  Country: US (occurrence: None)
  Receive Date: 20120906
  Receipt Date: 20120912
  Transmission Date: 20130627
  Serious: No
  Sender: FDA-Public Use
  Company Number: JPI-P-024791

PATIENT
  Age: 47 Year
  Sex: Female

DRUGS (7)
  1. XYREM [Suspect]
     Indication: NARCOLEPSY
     Dosage: (2.25 gm,2 in 1 D)
     Route: 048
     Dates: start: 20110907, end: 2011
  2. XYREM [Suspect]
     Indication: NARCOLEPSY
     Route: 048
     Dates: start: 2011, end: 2011
  3. XYREM [Suspect]
     Indication: NARCOLEPSY
     Dosage: (4.5 gm,2 in 1 D)
     Route: 048
     Dates: start: 20111229
  4. XYREM [Suspect]
     Indication: NARCOLEPSY
  5. XYREM [Suspect]
     Indication: NARCOLEPSY
  6. MODAFINIL [Concomitant]
  7. POLYETHYLENE GLYCOL [Concomitant]

REACTIONS (1)
  - Knee operation [None]
